FAERS Safety Report 5179729-6 (Version None)
Quarter: 2006Q4

REPORT INFORMATION
  Report Type: 
  Country: None (occurrence: None)
  Receive Date: 20061211
  Receipt Date: 20061128
  Transmission Date: 20070319
  Serious: Yes (Other)
  Sender: FDA-Public Use
  Company Number: 2006147109

PATIENT
  Age: 69 Year
  Sex: Female
  Weight: 108.8633 kg

DRUGS (8)
  1. CELEBREX [Suspect]
     Indication: ARTHRITIS
     Dosage: 200 MG (200 MG, 1 IN 1 D);
  2. CELEBREX [Suspect]
     Indication: LIMB DISCOMFORT
     Dosage: 200 MG (200 MG, 1 IN 1 D);
  3. ASPIRIN [Concomitant]
  4. POTASSIUM CHLORIDE [Concomitant]
  5. LEVOXYL [Concomitant]
  6. FUROSEMIDE [Concomitant]
  7. FISH OIL [Concomitant]
  8. ALL OTHER THERAPEUTIC PRODUCTS [Concomitant]

REACTIONS (3)
  - PAIN IN EXTREMITY [None]
  - RENAL DISORDER [None]
  - SPINAL DISORDER [None]
